FAERS Safety Report 7693538-5 (Version None)
Quarter: 2011Q3

REPORT INFORMATION
  Report Type: 
  Country: None (occurrence: None)
  Receive Date: 20110819
  Receipt Date: 20110819
  Transmission Date: 20111222
  Serious: Yes (Hospitalization)
  Sender: FDA-Public Use
  Company Number: US-ROXANE LABORATORIES, INC.-2011-RO-01164RO

PATIENT
  Sex: Female

DRUGS (2)
  1. RECLAST [Suspect]
  2. PREDNISONE [Suspect]

REACTIONS (1)
  - WEIGHT DECREASED [None]
